FAERS Safety Report 19265001 (Version 2)
Quarter: 2021Q2

REPORT INFORMATION
  Report Type: Spontaneous
  Country: US (occurrence: US)
  Receive Date: 20210517
  Receipt Date: 20210609
  Transmission Date: 20210717
  Serious: No
  Sender: FDA-Public Use
  Company Number: US-ASTRAZENECA-2021A367328

PATIENT
  Age: 30293 Day
  Sex: Female

DRUGS (10)
  1. ALLOPURINOL. [Concomitant]
     Active Substance: ALLOPURINOL
     Indication: GOUT
     Route: 065
  2. TIZANIDINE. [Concomitant]
     Active Substance: TIZANIDINE
     Indication: PAIN
     Route: 065
  3. BEVESPI AEROSPHERE [Suspect]
     Active Substance: FORMOTEROL FUMARATE\GLYCOPYRROLATE
     Indication: OXYGEN SATURATION DECREASED
     Dosage: 3 PUFF
     Route: 055
  4. TRAMADOL. [Concomitant]
     Active Substance: TRAMADOL
     Indication: PAIN
     Route: 065
  5. BEVESPI AEROSPHERE [Suspect]
     Active Substance: FORMOTEROL FUMARATE\GLYCOPYRROLATE
     Indication: DYSPNOEA
     Dosage: 3 PUFF
     Route: 055
  6. BEVESPI AEROSPHERE [Suspect]
     Active Substance: FORMOTEROL FUMARATE\GLYCOPYRROLATE
     Indication: DYSPNOEA
     Dosage: 9MCG?4.8 MCG, 2 PUFFS, TWICE A DAY
     Route: 055
     Dates: start: 20210421
  7. BEVESPI AEROSPHERE [Suspect]
     Active Substance: FORMOTEROL FUMARATE\GLYCOPYRROLATE
     Indication: OXYGEN SATURATION DECREASED
     Dosage: 9MCG?4.8 MCG, 2 PUFFS, TWICE A DAY
     Route: 055
     Dates: start: 20210421
  8. LABETALOL [Concomitant]
     Active Substance: LABETALOL\LABETALOL HYDROCHLORIDE
     Indication: BLOOD PRESSURE ABNORMAL
     Route: 065
  9. VITAMIN D [Concomitant]
     Active Substance: VITAMIN D NOS
     Route: 065
  10. MAGNESIUM [Concomitant]
     Active Substance: MAGNESIUM
     Indication: MUSCLE SPASMS
     Route: 065

REACTIONS (10)
  - Off label use [Not Recovered/Not Resolved]
  - Dyspnoea exertional [Recovering/Resolving]
  - Incorrect dose administered by device [Unknown]
  - Feeling jittery [Unknown]
  - Extra dose administered [Unknown]
  - Device leakage [Unknown]
  - Tremor [Unknown]
  - Feeling cold [Unknown]
  - Muscle spasms [Unknown]
  - Device use issue [Unknown]

NARRATIVE: CASE EVENT DATE: 20210421
